FAERS Safety Report 4767134-3 (Version None)
Quarter: 2005Q3

REPORT INFORMATION
  Report Type: 
  Country: None (occurrence: None)
  Receive Date: 20050909
  Receipt Date: 20050825
  Transmission Date: 20060218
  Serious: Yes (Hospitalization, Other)
  Sender: FDA-Public Use
  Company Number: 2005BI010597

PATIENT
  Age: 46 Year
  Sex: Male

DRUGS (1)
  1. AVONEX [Suspect]
     Indication: MULTIPLE SCLEROSIS
     Dosage: 30 UG;QW; IM
     Route: 030
     Dates: start: 19991101

REACTIONS (8)
  - ABNORMAL BEHAVIOUR [None]
  - BALANCE DISORDER [None]
  - DIPLEGIA [None]
  - FALL [None]
  - FEELING DRUNK [None]
  - HIP FRACTURE [None]
  - OSTEOPOROSIS [None]
  - SOMATOFORM DISORDER [None]
